FAERS Safety Report 9294006 (Version 1)
Quarter: 2013Q1

REPORT INFORMATION
  Report Type: Spontaneous
  Country: US (occurrence: None)
  Receive Date: 20121227
  Receipt Date: 20121227
  Transmission Date: 20140127
  Serious: Yes (Hospitalization)
  Sender: FDA-Public Use
  Company Number: PHEH2012US004966

PATIENT
  Age: 33 Year
  Sex: Female

DRUGS (9)
  1. EXJADE [Suspect]
     Indication: IRON OVERLOAD
     Route: 048
  2. PREDNISONE (PREDNISONE) [Concomitant]
  3. FOLIC ACID (FOLIC ACID) [Concomitant]
  4. HYDROXYUREA (HYDROXYCARBAMIDE) [Concomitant]
  5. MORPHINE [Concomitant]
  6. OXYCODONE (OXYCODONE) [Concomitant]
  7. IBUPROFEN (IBUPROFEN) [Concomitant]
  8. DILAUDID (HYDROMORPHONE HYDROCHLORIDE) [Concomitant]
  9. MS CONTIN [Concomitant]

REACTIONS (1)
  - Sickle cell anaemia with crisis [None]
